FAERS Safety Report 8089368-5 (Version None)
Quarter: 2012Q1

REPORT INFORMATION
  Report Type: 
  Country: None (occurrence: None)
  Receive Date: 20120128
  Receipt Date: 20110824
  Transmission Date: 20120608
  Serious: No
  Sender: FDA-Public Use
  Company Number: US-ABBOTT-11P-163-0835792-00

PATIENT
  Sex: Female

DRUGS (13)
  1. PRILOSEC [Concomitant]
     Indication: ILL-DEFINED DISORDER
     Dosage: 20 MG ONE BY MOUTH EVERY DAY
     Route: 048
  2. MULTIPLE VITAMIN [Concomitant]
     Indication: SUPPLEMENTATION THERAPY
     Dosage: ONE BY MOUTH
     Route: 048
  3. D3 [Concomitant]
     Indication: SUPPLEMENTATION THERAPY
     Dosage: ONE BY MOUTH
     Route: 048
  4. LISINOPRIL/HTCZ [Concomitant]
     Indication: BLOOD PRESSURE
     Dosage: 20/25 MG TAKES ON EVERY DAY
     Route: 048
  5. PRAVASTATIN [Concomitant]
     Indication: BLOOD CHOLESTEROL
     Dosage: 40 MG BY MOUTH ONE EVERY DAY
     Route: 048
  6. LEXAPRO [Concomitant]
     Indication: DEPRESSION
     Dosage: ONE BY MOUTH EVERY DAY
     Route: 048
  7. LORAZEPAM [Concomitant]
     Indication: ANXIETY
     Dosage: 1 MG ONE BY MOUTH EVERY DAY AS NEEDED
     Route: 048
  8. HUMIRA [Suspect]
     Indication: PSORIASIS
     Route: 058
     Dates: start: 20110523
  9. HUMIRA [Suspect]
  10. GARLIC [Concomitant]
     Indication: SUPPLEMENTATION THERAPY
     Dosage: ONE BY MOUTH
     Route: 048
  11. HUMIRA [Suspect]
     Indication: PSORIATIC ARTHROPATHY
  12. FISH OIL [Concomitant]
     Indication: SUPPLEMENTATION THERAPY
     Dosage: ONE BY MOUTH
     Route: 048
  13. IRON [Concomitant]
     Indication: ANAEMIA
     Dosage: ONE BY MOUTH

REACTIONS (11)
  - INJECTION SITE ERYTHEMA [None]
  - INJECTION SITE WARMTH [None]
  - HEADACHE [None]
  - INJECTION SITE SWELLING [None]
  - PYREXIA [None]
  - INJECTION SITE PAIN [None]
  - INJECTION SITE VESICLES [None]
  - PAIN [None]
  - FIBROMYALGIA [None]
  - INJECTION SITE REACTION [None]
  - INJECTION SITE NODULE [None]
